FAERS Safety Report 4606870-6 (Version None)
Quarter: 2005Q1

REPORT INFORMATION
  Report Type: 
  Country: None (occurrence: None)
  Receive Date: 20050309
  Receipt Date: 20050224
  Transmission Date: 20050727
  Serious: Yes (Hospitalization)
  Sender: FDA-Public Use
  Company Number: 2005037529

PATIENT
  Age: 75 Year
  Sex: Female
  Weight: 61.2356 kg

DRUGS (8)
  1. LIPITOR [Suspect]
     Indication: BLOOD CHOLESTEROL INCREASED
     Dosage: 20 MG (20 MG, 1 IN 1 D), ORAL
     Route: 048
     Dates: end: 20050121
  2. CLOPIDOGREL BISULFATE [Concomitant]
  3. LEVOTHYROXINE SODIUM [Concomitant]
  4. ASPIRIN [Concomitant]
  5. CONJUGATED ESTROGENS [Concomitant]
  6. GLUCOSAMINE SULFATE (GLUCOSAMINE SULFATE) [Concomitant]
  7. METHYLSULFONYLMETHANE (METHYLSULFONYLMETHANE) [Concomitant]
  8. MULTIVITAMINS  (ASCORBIC ACID, EROGOCALCIFEROL, FOLIC AICD, NICOTINAMI [Concomitant]

REACTIONS (12)
  - ASTHENIA [None]
  - BLOOD CHOLESTEROL ABNORMAL [None]
  - CONFUSIONAL STATE [None]
  - DIFFICULTY IN WALKING [None]
  - INSOMNIA [None]
  - JOINT SWELLING [None]
  - LETHARGY [None]
  - MUSCULAR WEAKNESS [None]
  - MYALGIA [None]
  - PAIN [None]
  - SKIN DISCOLOURATION [None]
  - TRANSIENT ISCHAEMIC ATTACK [None]
